FAERS Safety Report 8847366 (Version 3)
Quarter: 2012Q4

REPORT INFORMATION
  Report Type: 
  Country: US (occurrence: US)
  Receive Date: 20121018
  Receipt Date: 20121101
  Transmission Date: 20130627
  Serious: Yes (Hospitalization)
  Sender: FDA-Public Use
  Company Number: US-GILEAD-2012-0062987

PATIENT
  Age: 42 Year
  Sex: Female

DRUGS (2)
  1. LETAIRIS [Suspect]
     Indication: PULMONARY HYPERTENSION
     Dosage: 10 mg, UNK
     Route: 048
     Dates: start: 20090604
  2. NORVASC [Concomitant]

REACTIONS (4)
  - Syncope [Not Recovered/Not Resolved]
  - Loss of consciousness [Unknown]
  - Cardiovascular disorder [Unknown]
  - Cardiovascular disorder [Unknown]
